FAERS Safety Report 19389033 (Version 1)
Quarter: 2021Q2

REPORT INFORMATION
  Report Type: Report from Study
  Country: US (occurrence: US)
  Receive Date: 20210608
  Receipt Date: 20210608
  Transmission Date: 20210717
  Serious: Yes (Hospitalization)
  Sender: FDA-Public Use
  Company Number: US-ROCHE-2825592

PATIENT
  Sex: Female

DRUGS (22)
  1. ALLOPURINOL. [Concomitant]
     Active Substance: ALLOPURINOL
  2. BACTRIM [Concomitant]
     Active Substance: SULFAMETHOXAZOLE\TRIMETHOPRIM
  3. IMODIUM [Concomitant]
     Active Substance: LOPERAMIDE HYDROCHLORIDE
  4. ALVESCO [Concomitant]
     Active Substance: CICLESONIDE
  5. ASPIRIN. [Concomitant]
     Active Substance: ASPIRIN
  6. LEVETIRACETAM. [Concomitant]
     Active Substance: LEVETIRACETAM
  7. FOLIC ACID. [Concomitant]
     Active Substance: FOLIC ACID
  8. NIFEDIPINE. [Concomitant]
     Active Substance: NIFEDIPINE
  9. CLONIDINE. [Concomitant]
     Active Substance: CLONIDINE
  10. IBRUTINIB [Suspect]
     Active Substance: IBRUTINIB
     Indication: B-CELL LYMPHOMA REFRACTORY
     Route: 048
     Dates: start: 20210111, end: 20210503
  11. VERAPAMIL [Concomitant]
     Active Substance: VERAPAMIL HYDROCHLORIDE
  12. OBINUTUZUMAB. [Suspect]
     Active Substance: OBINUTUZUMAB
     Indication: B-CELL LYMPHOMA REFRACTORY
     Route: 042
     Dates: start: 20210111, end: 20210501
  13. VENETOCLAX. [Suspect]
     Active Substance: VENETOCLAX
     Indication: B-CELL LYMPHOMA REFRACTORY
     Dosage: VARYING DOSES OF 200?800MG
     Route: 048
     Dates: start: 20210202, end: 20210503
  14. LENALIDOMIDE [Suspect]
     Active Substance: LENALIDOMIDE
     Indication: B-CELL LYMPHOMA REFRACTORY
     Route: 048
     Dates: start: 20210111, end: 20210503
  15. VENTOLIN [Concomitant]
     Active Substance: ALBUTEROL SULFATE
  16. LOPERAMIDE [Concomitant]
     Active Substance: LOPERAMIDE
  17. ATORVASTATIN [Concomitant]
     Active Substance: ATORVASTATIN
  18. PREDNISONE. [Suspect]
     Active Substance: PREDNISONE
     Indication: B-CELL LYMPHOMA REFRACTORY
     Route: 048
     Dates: start: 20210111, end: 20210503
  19. CLONIDINE. [Concomitant]
     Active Substance: CLONIDINE
  20. PANTOPRAZOLE [Concomitant]
     Active Substance: PANTOPRAZOLE
  21. HYDROCHLOROTHIAZIDE. [Concomitant]
     Active Substance: HYDROCHLOROTHIAZIDE
  22. ARIMIDEX [Concomitant]
     Active Substance: ANASTROZOLE

REACTIONS (1)
  - Acute kidney injury [Not Recovered/Not Resolved]

NARRATIVE: CASE EVENT DATE: 20210504
